FAERS Safety Report 17646248 (Version 1)
Quarter: 2020Q2

REPORT INFORMATION
  Report Type: Report from Study
  Country: IT (occurrence: IT)
  Receive Date: 20200408
  Receipt Date: 20200408
  Transmission Date: 20200713
  Serious: Yes (Other)
  Sender: FDA-Public Use
  Company Number: IT-TEVA-2020-IT-1221128

PATIENT
  Age: 46 Year
  Sex: Female

DRUGS (2)
  1. KETOPROFEN. [Suspect]
     Active Substance: KETOPROFEN
     Indication: BACK PAIN
     Dosage: 1 DOSAGE FORMS
     Route: 048
     Dates: start: 20200226, end: 20200226
  2. CONTRAMAL [Suspect]
     Active Substance: TRAMADOL HYDROCHLORIDE
     Indication: BACK PAIN
     Dosage: 1 DOSAGE FORMS
     Route: 048
     Dates: start: 20200226, end: 20200226

REACTIONS (2)
  - Tremor [Unknown]
  - Malaise [Unknown]

NARRATIVE: CASE EVENT DATE: 20200226
